FAERS Safety Report 6860183-0 (Version None)
Quarter: 2010Q2

REPORT INFORMATION
  Report Type: 
  Country: None (occurrence: None)
  Receive Date: 20100528
  Receipt Date: 20100304
  Transmission Date: 20101027
  Serious: Yes (Other)
  Sender: FDA-Public Use
  Company Number: CIP10000129

PATIENT
  Sex: Female

DRUGS (1)
  1. ACTONEL [Suspect]
     Dosage: 150 MG, ORAL
     Route: 048
     Dates: end: 20090501

REACTIONS (9)
  - ABDOMINAL PAIN LOWER [None]
  - CHOKING [None]
  - DYSPHAGIA [None]
  - GAIT DISTURBANCE [None]
  - MICTURITION URGENCY [None]
  - MYALGIA [None]
  - PELVIC PAIN [None]
  - PELVIC PROLAPSE [None]
  - URINARY TRACT INFECTION [None]
